FAERS Safety Report 15979969 (Version 1)
Quarter: 2019Q1

REPORT INFORMATION
  Report Type: Spontaneous
  Country: ES (occurrence: ES)
  Receive Date: 20190219
  Receipt Date: 20190219
  Transmission Date: 20190418
  Serious: Yes (Other)
  Sender: FDA-Public Use
  Company Number: ES-ACCORD-108129

PATIENT
  Age: 80 Year
  Sex: Male

DRUGS (1)
  1. CAPECITABINE. [Suspect]
     Active Substance: CAPECITABINE
     Indication: LUNG ADENOCARCINOMA
     Route: 065
     Dates: start: 2018

REACTIONS (2)
  - Dacryostenosis acquired [Unknown]
  - Off label use [Unknown]

NARRATIVE: CASE EVENT DATE: 2018
